FAERS Safety Report 5903216-8 (Version None)
Quarter: 2008Q3

REPORT INFORMATION
  Report Type: 
  Country: None (occurrence: None)
  Receive Date: 20080930
  Receipt Date: 20080926
  Transmission Date: 20090109
  Serious: Yes (Hospitalization)
  Sender: FDA-Public Use
  Company Number: DE-BRISTOL-MYERS SQUIBB COMPANY-14068134

PATIENT
  Age: 55 Year
  Sex: Female
  Weight: 71 kg

DRUGS (4)
  1. CETUXIMAB [Suspect]
     Indication: COLORECTAL CANCER
     Dosage: MOST RECENT ADMINISTRATION ON 11JAN08. RECEIVED 432.7 MG ON 18JAN08 AND 25JAN08
     Route: 042
     Dates: start: 20080122
  2. OXALIPLATIN [Suspect]
     Indication: COLORECTAL CANCER
     Dosage: MOST RECENT INFUSION ON 30AUG07
     Route: 042
     Dates: start: 20070122, end: 20070830
  3. BEVACIZUMAB [Suspect]
     Indication: COLORECTAL CANCER
     Dosage: MOST RECENT INFUSION ON 28DEC07
     Route: 042
     Dates: start: 20070122
  4. CAPECITABINE [Suspect]
     Indication: COLORECTAL CANCER
     Dosage: FORM = TAB. MOST RECENT ADMINISTRATION ON 11JAN08. RECEIVED 502.5 MG ON 18JAN08 TAKEN 2595MG
     Route: 048
     Dates: start: 20080122

REACTIONS (1)
  - MUSCLE SPASMS [None]
